FAERS Safety Report 10955591 (Version 3)
Quarter: 2015Q2

REPORT INFORMATION
  Report Type: Report from Study
  Country: JP (occurrence: JP)
  Receive Date: 20150326
  Receipt Date: 20150527
  Transmission Date: 20150821
  Serious: Yes (Hospitalization, Other)
  Sender: FDA-Public Use
  Company Number: JP-ROCHE-1555587

PATIENT
  Age: 64 Year
  Sex: Male

DRUGS (19)
  1. FERROMIA [Concomitant]
     Active Substance: FERROUS CITRATE
     Indication: DIABETIC NEPHROPATHY
     Route: 048
     Dates: end: 20131119
  2. TAKEPRON [Concomitant]
     Active Substance: LANSOPRAZOLE
     Route: 048
  3. METHOXY POLYETHYLENE GLYCOL-EPOETIN BETA [Suspect]
     Active Substance: METHOXY POLYETHYLENE GLYCOL-EPOETIN BETA
     Indication: NEPHROGENIC ANAEMIA
     Route: 058
     Dates: start: 20121121, end: 20130527
  4. METHOXY POLYETHYLENE GLYCOL-EPOETIN BETA [Suspect]
     Active Substance: METHOXY POLYETHYLENE GLYCOL-EPOETIN BETA
     Indication: NEPHROGENIC ANAEMIA
     Route: 058
     Dates: start: 20130729, end: 20130929
  5. METHOXY POLYETHYLENE GLYCOL-EPOETIN BETA [Suspect]
     Active Substance: METHOXY POLYETHYLENE GLYCOL-EPOETIN BETA
     Indication: NEPHROGENIC ANAEMIA
     Route: 058
     Dates: start: 20140106, end: 20140216
  6. ADALAT CC [Concomitant]
     Active Substance: NIFEDIPINE
     Route: 048
  7. THYRADIN-S [Concomitant]
     Active Substance: LEVOTHYROXINE
     Route: 048
  8. METHOXY POLYETHYLENE GLYCOL-EPOETIN BETA [Suspect]
     Active Substance: METHOXY POLYETHYLENE GLYCOL-EPOETIN BETA
     Indication: NEPHROGENIC ANAEMIA
     Route: 058
     Dates: start: 20131130, end: 20140105
  9. THYRADIN-S [Concomitant]
     Active Substance: LEVOTHYROXINE
     Route: 048
  10. PLETAAL [Concomitant]
     Active Substance: CILOSTAZOL
     Dosage: OD
     Route: 048
  11. MICOMBI COMBINATION [Concomitant]
     Active Substance: HYDROCHLOROTHIAZIDE\TELMISARTAN
     Route: 048
     Dates: end: 20131119
  12. METHOXY POLYETHYLENE GLYCOL-EPOETIN BETA [Suspect]
     Active Substance: METHOXY POLYETHYLENE GLYCOL-EPOETIN BETA
     Indication: NEPHROGENIC ANAEMIA
     Route: 058
     Dates: start: 20130930, end: 20131129
  13. BAYASPIRIN [Concomitant]
     Active Substance: ASPIRIN
     Route: 048
  14. ATELEC [Concomitant]
     Active Substance: CILNIDIPINE
     Route: 048
  15. METHOXY POLYETHYLENE GLYCOL-EPOETIN BETA [Suspect]
     Active Substance: METHOXY POLYETHYLENE GLYCOL-EPOETIN BETA
     Indication: NEPHROGENIC ANAEMIA
     Route: 058
     Dates: start: 20140217, end: 20140511
  16. METHOXY POLYETHYLENE GLYCOL-EPOETIN BETA [Suspect]
     Active Substance: METHOXY POLYETHYLENE GLYCOL-EPOETIN BETA
     Indication: NEPHROGENIC ANAEMIA
     Dosage: MOST RECENT DOSE ON 13/JUL/2014
     Route: 058
     Dates: start: 20140512
  17. LUPRAC [Concomitant]
     Active Substance: TORSEMIDE
     Route: 048
  18. KAYEXALATE [Concomitant]
     Active Substance: SODIUM POLYSTYRENE SULFONATE
     Route: 048
     Dates: end: 20131119
  19. INSULIN [Concomitant]
     Active Substance: INSULIN NOS
     Indication: DIABETES MELLITUS
     Dosage: DOSAGE IS UNCERTAIN.
     Route: 058

REACTIONS (5)
  - Decreased appetite [Recovered/Resolved]
  - Cardiac failure congestive [Recovered/Resolved]
  - Dehydration [Recovered/Resolved]
  - Chronic kidney disease [Unknown]
  - Hyperphagia [Unknown]

NARRATIVE: CASE EVENT DATE: 20131105
